FAERS Safety Report 7013151-2 (Version None)
Quarter: 2010Q3

REPORT INFORMATION
  Report Type: 
  Country: None (occurrence: None)
  Receive Date: 20100924
  Receipt Date: 20100916
  Transmission Date: 20110219
  Serious: Yes (Other)
  Sender: FDA-Public Use
  Company Number: US-PFIZER INC-2007007226

PATIENT
  Sex: Male
  Weight: 142.86 kg

DRUGS (27)
  1. DEPO-PROVERA [Suspect]
     Indication: OFF LABEL USE
     Dosage: 500 MG, ONCE IN 8 WEEKS
     Route: 030
     Dates: start: 19840620, end: 19850101
  2. DEPO-PROVERA [Suspect]
     Indication: SEXUAL ABUSE
  3. SEROQUEL [Suspect]
     Dosage: UNK
  4. METFORMIN [Concomitant]
     Indication: DIABETES MELLITUS
  5. WELLBUTRIN [Concomitant]
  6. ASPIRIN [Concomitant]
  7. GLIPIZIDE [Concomitant]
  8. LEXAPRO [Concomitant]
  9. CARTIA XT [Concomitant]
     Indication: HYPERTENSION
  10. ACIPHEX [Concomitant]
  11. AVANDIA [Concomitant]
  12. CLONAZEPAM [Concomitant]
  13. LISINOPRIL [Concomitant]
  14. REGLAN [Concomitant]
  15. ADVAIR DISKUS 100/50 [Concomitant]
     Indication: ASTHMA
  16. SINGULAIR ^DIECKMANN^ [Concomitant]
     Indication: ASTHMA
  17. NASONEX [Concomitant]
  18. PRAVACHOL [Concomitant]
     Dosage: UNK
  19. POLYETHYLENE GLYCOL [Concomitant]
     Dosage: UNK
  20. CELEXA [Concomitant]
     Dosage: UNK
  21. ABILIFY [Concomitant]
     Dosage: UNK
  22. VITAMIN B-12 [Concomitant]
     Dosage: UNK
  23. ALBUTEROL [Concomitant]
     Dosage: UNK
  24. PROTONIX [Concomitant]
     Dosage: UNK
  25. MULTI-VITAMINS [Concomitant]
     Dosage: UNK
  26. TRAZODONE [Concomitant]
     Dosage: UNK
  27. CARAFATE [Concomitant]
     Indication: ABDOMINAL DISCOMFORT
     Dosage: UNK

REACTIONS (9)
  - ASTHMA [None]
  - ERECTILE DYSFUNCTION [None]
  - HYPERTENSION [None]
  - INCREASED APPETITE [None]
  - PENIS DISORDER [None]
  - PROSTATIC DISORDER [None]
  - SLEEP APNOEA SYNDROME [None]
  - THERAPEUTIC PRODUCT INEFFECTIVE FOR UNAPPROVED INDICATION [None]
  - WEIGHT INCREASED [None]
